FAERS Safety Report 7392148-7 (Version None)
Quarter: 2011Q2

REPORT INFORMATION
  Report Type: 
  Country: None (occurrence: None)
  Receive Date: 20110404
  Receipt Date: 20110325
  Transmission Date: 20111010
  Serious: Yes (Other)
  Sender: FDA-Public Use
  Company Number: A0920086A

PATIENT
  Age: 62 Year
  Sex: Female

DRUGS (11)
  1. NEXIUM [Concomitant]
  2. VITAMIN D [Concomitant]
  3. DOMPERIDONE [Concomitant]
  4. MAGNESIUM [Concomitant]
  5. VITAMIN B-12 [Concomitant]
  6. METAMUCIL-2 [Concomitant]
  7. PYRIDOXINE HCL [Concomitant]
  8. CALCIUM [Concomitant]
  9. TYKERB [Suspect]
     Indication: BREAST CANCER
     Dosage: 1000MG PER DAY
     Route: 048
     Dates: start: 20100601
  10. HERCEPTIN [Concomitant]
  11. MULTI-VITAMIN [Concomitant]

REACTIONS (10)
  - DIARRHOEA [None]
  - METASTATIC NEOPLASM [None]
  - VOMITING [None]
  - GASTROINTESTINAL BACTERIAL INFECTION [None]
  - ONYCHALGIA [None]
  - DRUG INEFFECTIVE [None]
  - ONYCHOMADESIS [None]
  - DISEASE PROGRESSION [None]
  - NAIL DISCOLOURATION [None]
  - PAIN IN EXTREMITY [None]
